FAERS Safety Report 19912782 (Version 1)
Quarter: 2021Q4

REPORT INFORMATION
  Report Type: Spontaneous
  Country: US (occurrence: US)
  Receive Date: 20211004
  Receipt Date: 20211004
  Transmission Date: 20220303
  Serious: No
  Sender: FDA-Public Use
  Company Number: None

PATIENT
  Age: 63 Year
  Sex: Female
  Weight: 66.6 kg

DRUGS (8)
  1. BAMLANIVIMAB\ETESEVIMAB [Suspect]
     Active Substance: BAMLANIVIMAB\ETESEVIMAB
     Indication: COVID-19
     Route: 042
     Dates: start: 20210929, end: 20210929
  2. VITAMIN C [Concomitant]
     Active Substance: ASCORBIC ACID
  3. VITAMIN D3 [Concomitant]
     Active Substance: CHOLECALCIFEROL
  4. ZINCE [Concomitant]
  5. MAGNESIUM [Concomitant]
     Active Substance: MAGNESIUM
  6. BONE BUILDING FORMULA [Concomitant]
  7. EDERBERRY [Concomitant]
  8. IONIC MINERALS (BROAD SPECTRUM MINERALS) [Concomitant]

REACTIONS (7)
  - Pyrexia [None]
  - Headache [None]
  - Sinus congestion [None]
  - Anosmia [None]
  - Respiratory tract congestion [None]
  - Deafness [None]
  - Pain [None]
